FAERS Safety Report 6681804-1 (Version None)
Quarter: 2010Q2

REPORT INFORMATION
  Report Type: 
  Country: None (occurrence: None)
  Receive Date: 20100414
  Receipt Date: 20090918
  Transmission Date: 20101027
  Serious: No
  Sender: FDA-Public Use
  Company Number: US-BAUSCH-2009BL004727

PATIENT
  Age: 89 Year
  Sex: Female
  Weight: 62 kg

DRUGS (10)
  1. LEVOBUNOLOL HYDROCHLORIDE [Suspect]
     Indication: OPEN ANGLE GLAUCOMA
     Route: 047
  2. LEVOBUNOLOL HYDROCHLORIDE [Suspect]
     Route: 047
     Dates: end: 20090918
  3. ATACAND [Concomitant]
     Indication: HYPERTENSION
     Route: 048
  4. GLIPIZIDE [Concomitant]
     Indication: TYPE 2 DIABETES MELLITUS
     Route: 048
  5. METHYCLOTHIAZIDE [Concomitant]
     Route: 048
  6. CALCIUM PLUS D [Concomitant]
  7. CENTRUM SILVER [Concomitant]
  8. SIMVASTATIN [Concomitant]
     Indication: BLOOD CHOLESTEROL INCREASED
     Route: 048
  9. ASPIRIN [Concomitant]
     Route: 048
  10. FOSAMAX [Concomitant]
     Indication: OSTEOPOROSIS
     Route: 048

REACTIONS (3)
  - LIP DRY [None]
  - LIP PAIN [None]
  - LIP SWELLING [None]
